FAERS Safety Report 18901401 (Version 2)
Quarter: 2021Q3

REPORT INFORMATION
  Report Type: Spontaneous
  Country: GB (occurrence: GB)
  Receive Date: 20210216
  Receipt Date: 20210824
  Transmission Date: 20211014
  Serious: Yes (Other)
  Sender: FDA-Public Use
  Company Number: GB-MYLANLABS-2020M1082479

PATIENT
  Age: 38 Year
  Sex: Male

DRUGS (1)
  1. CLOZARIL [Suspect]
     Active Substance: CLOZAPINE
     Indication: PRODUCT USED FOR UNKNOWN INDICATION
     Dosage: UNK
     Route: 048
     Dates: start: 20050204

REACTIONS (3)
  - Red blood cell count decreased [Recovering/Resolving]
  - Mean cell volume increased [Recovering/Resolving]
  - Full blood count abnormal [Unknown]

NARRATIVE: CASE EVENT DATE: 20200921
